FAERS Safety Report 7990895-7 (Version None)
Quarter: 2011Q4

REPORT INFORMATION
  Report Type: 
  Country: None (occurrence: None)
  Receive Date: 20111219
  Receipt Date: 20111125
  Transmission Date: 20120403
  Serious: Yes (Other)
  Sender: FDA-Public Use
  Company Number: PL-ROCHE-1016731

PATIENT
  Age: 16 Year
  Sex: Female

DRUGS (7)
  1. TACROLIMUS [Concomitant]
     Indication: TRANSPLANT REJECTION
  2. MYCOPHENOLATE MOFETIL [Suspect]
     Indication: TRANSPLANT REJECTION
     Route: 065
  3. AZATHIOPRINE [Concomitant]
     Indication: TRANSPLANT REJECTION
  4. GANCICLOVIR SODIUM [Suspect]
     Indication: PRODUCT USED FOR UNKNOWN INDICATION
     Route: 065
  5. CYA [Concomitant]
     Indication: TRANSPLANT REJECTION
  6. RITUXIMAB [Suspect]
     Indication: B-CELL LYMPHOMA
     Route: 065
  7. SOLU-MEDROL [Concomitant]
     Indication: TRANSPLANT REJECTION

REACTIONS (8)
  - ABDOMINAL PAIN [None]
  - LARGE INTESTINE PERFORATION [None]
  - B-CELL LYMPHOMA [None]
  - SMALL INTESTINAL PERFORATION [None]
  - LYMPHADENOPATHY [None]
  - BLOOD LACTATE DEHYDROGENASE INCREASED [None]
  - PYREXIA [None]
  - DIARRHOEA [None]
